FAERS Safety Report 16175593 (Version 1)
Quarter: 2019Q2

REPORT INFORMATION
  Report Type: Spontaneous
  Country: JP (occurrence: JP)
  Receive Date: 20190409
  Receipt Date: 20190409
  Transmission Date: 20190711
  Serious: Yes (Hospitalization, Other)
  Sender: FDA-Public Use
  Company Number: JP-ELI_LILLY_AND_COMPANY-JP201903003729

PATIENT
  Age: 70 Year
  Sex: Male

DRUGS (2)
  1. CYRAMZA [Suspect]
     Active Substance: RAMUCIRUMAB
     Indication: GASTRIC CANCER
     Dosage: UNK UNK, CYCLICAL
     Route: 041
     Dates: start: 201604
  2. PACLITAXEL. [Suspect]
     Active Substance: PACLITAXEL
     Indication: GASTRIC CANCER
     Dosage: UNK
     Route: 041
     Dates: start: 201604

REACTIONS (4)
  - Tumour haemorrhage [Recovered/Resolved]
  - Arterial haemorrhage [Recovered/Resolved]
  - Malignant neoplasm progression [Unknown]
  - Shock [Recovered/Resolved]

NARRATIVE: CASE EVENT DATE: 201701
